FAERS Safety Report 6923688-X (Version None)
Quarter: 2010Q3

REPORT INFORMATION
  Report Type: 
  Country: None (occurrence: None)
  Receive Date: 20100813
  Receipt Date: 20100806
  Transmission Date: 20110219
  Serious: Yes (Other)
  Sender: FDA-Public Use
  Company Number: B0669304A

PATIENT
  Age: 11 Year
  Sex: Female
  Weight: 35 kg

DRUGS (8)
  1. ONDANSETRON [Suspect]
     Indication: PROPHYLAXIS OF NAUSEA AND VOMITING
     Dosage: .1MGK SINGLE DOSE
     Route: 065
  2. DIMENHYDRINATE [Concomitant]
     Indication: PROPHYLAXIS OF NAUSEA AND VOMITING
     Dosage: .4MGK SINGLE DOSE
     Route: 065
  3. DEXAMETHASONE [Concomitant]
     Indication: PROPHYLAXIS OF NAUSEA AND VOMITING
     Dosage: 3.5MG SINGLE DOSE
     Route: 065
  4. LIDOCAINE [Concomitant]
     Dosage: 1MGK SINGLE DOSE
     Route: 065
  5. SEVOFLURANE [Concomitant]
  6. FENTANYL [Concomitant]
     Dosage: .5UGK SINGLE DOSE
     Route: 065
  7. REMIFENTANIL [Concomitant]
     Dosage: 50UG SINGLE DOSE
     Route: 065
  8. ROCURONIUM BROMIDE [Concomitant]
     Dosage: 10MG SINGLE DOSE
     Route: 065

REACTIONS (9)
  - ARRHYTHMIA [None]
  - DRUG INEFFECTIVE [None]
  - ELECTROCARDIOGRAM QT PROLONGED [None]
  - PROCEDURAL NAUSEA [None]
  - PROCEDURAL VOMITING [None]
  - RESPIRATORY ACIDOSIS [None]
  - SINUS RHYTHM [None]
  - VENTRICULAR EXTRASYSTOLES [None]
  - VENTRICULAR TACHYCARDIA [None]
